FAERS Safety Report 20033660 (Version 1)
Quarter: 2021Q4

REPORT INFORMATION
  Report Type: Spontaneous
  Country: US (occurrence: US)
  Receive Date: 20211104
  Receipt Date: 20211104
  Transmission Date: 20220303
  Serious: Yes (Death, Hospitalization)
  Sender: FDA-Public Use
  Company Number: US-drreddys-LIT/USA/21/0143447

PATIENT
  Age: 15 Year
  Sex: Female

DRUGS (1)
  1. DIPHENHYDRAMINE HYDROCHLORIDE [Suspect]
     Active Substance: DIPHENHYDRAMINE HYDROCHLORIDE
     Indication: Product used for unknown indication

REACTIONS (8)
  - Toxicity to various agents [Fatal]
  - Anticholinergic syndrome [Unknown]
  - Electrocardiogram QT prolonged [Unknown]
  - Metabolic acidosis [Unknown]
  - Anion gap [Unknown]
  - Depressed level of consciousness [Unknown]
  - Hypertension [Unknown]
  - Tachycardia [Unknown]
